FAERS Safety Report 5635861-1 (Version None)
Quarter: 2008Q1

REPORT INFORMATION
  Report Type: 
  Country: None (occurrence: None)
  Receive Date: 20080221
  Receipt Date: 20080212
  Transmission Date: 20080703
  Serious: Yes (Hospitalization, Other)
  Sender: FDA-Public Use
  Company Number: GXKR2008DE01547

PATIENT
  Age: 38 Year
  Sex: Male

DRUGS (1)
  1. DOXYHEXAL (NGX)(DOXYCYCLINE) CAPSULE, 200MG [Suspect]
     Indication: BORRELIA INFECTION
     Dosage: 200 MG, QD, ORAL
     Route: 048
     Dates: start: 20070912

REACTIONS (5)
  - EPILEPSY [None]
  - ISCHAEMIC STROKE [None]
  - JAW DISORDER [None]
  - MUSCLE TWITCHING [None]
  - TREMOR [None]
